FAERS Safety Report 6222744-1 (Version None)
Quarter: 2009Q2

REPORT INFORMATION
  Report Type: 
  Country: None (occurrence: None)
  Receive Date: 20090611
  Receipt Date: 20090601
  Transmission Date: 20091009
  Serious: Yes (Hospitalization)
  Sender: FDA-Public Use
  Company Number: A0749279A

PATIENT
  Age: 48 Year
  Sex: Male

DRUGS (2)
  1. AVANDIA [Suspect]
     Route: 065
     Dates: start: 20050825, end: 20070415
  2. AVANDAMET [Suspect]
     Dosage: 500MG PER DAY
     Route: 048
     Dates: start: 20050825, end: 20051201

REACTIONS (6)
  - CORONARY ARTERY DISEASE [None]
  - HEART INJURY [None]
  - HYPERTENSION [None]
  - LIFE EXPECTANCY SHORTENED [None]
  - MYOCARDIAL INFARCTION [None]
  - QUALITY OF LIFE DECREASED [None]
